FAERS Safety Report 18858379 (Version 1)
Quarter: 2021Q1

REPORT INFORMATION
  Report Type: Spontaneous
  Country: IN (occurrence: IN)
  Receive Date: 20210208
  Receipt Date: 20210208
  Transmission Date: 20210420
  Serious: Yes (Life-Threatening, Hospitalization, Other)
  Sender: FDA-Public Use
  Company Number: IN-PURACAP-IN-2021EPCLIT00063

PATIENT
  Age: 23 Year
  Sex: Male

DRUGS (4)
  1. DOXYCYCLINE. [Suspect]
     Active Substance: DOXYCYCLINE
     Indication: PYREXIA
     Route: 065
  2. DIAZEPAM. [Interacting]
     Active Substance: DIAZEPAM
     Indication: DYSTONIA
     Route: 042
  3. CHLOROQUINE. [Suspect]
     Active Substance: CHLOROQUINE
     Indication: PYREXIA
     Route: 065
  4. PROMETHAZINE [Interacting]
     Active Substance: PROMETHAZINE HYDROCHLORIDE
     Indication: DYSTONIA
     Route: 030

REACTIONS (2)
  - Drug interaction [Unknown]
  - Dystonia [Recovered/Resolved]
